FAERS Safety Report 9629514 (Version 2)
Quarter: 2013Q4

REPORT INFORMATION
  Report Type: Report from Study
  Country: JP (occurrence: JP)
  Receive Date: 20131017
  Receipt Date: 20131017
  Transmission Date: 20140711
  Serious: Yes (Other)
  Sender: FDA-Public Use
  Company Number: JP-ROCHE-1285632

PATIENT
  Sex: 0

DRUGS (1)
  1. OSELTAMIVIR [Suspect]
     Indication: INFLUENZA
     Route: 065

REACTIONS (19)
  - Meningitis haemophilus [Recovered/Resolved]
  - Vomiting [Recovered/Resolved]
  - Diarrhoea [Recovered/Resolved]
  - Hypothermia [Recovered/Resolved]
  - Rash [Recovered/Resolved]
  - Otitis media [Recovered/Resolved]
  - Agitation [Recovered/Resolved]
  - Lethargy [Recovered/Resolved]
  - Tremor [Recovered/Resolved]
  - Subdural hygroma [Recovered/Resolved]
  - Blepharitis [Recovered/Resolved]
  - Epistaxis [Recovered/Resolved]
  - Colitis [Recovered/Resolved]
  - Faeces pale [Recovered/Resolved]
  - Eczema [Recovered/Resolved]
  - Erythema [Recovered/Resolved]
  - Rash papular [Recovered/Resolved]
  - Pyrexia [Recovered/Resolved]
  - Liver palpable subcostal [Recovered/Resolved]
